FAERS Safety Report 11053389 (Version 1)
Quarter: 2015Q2

REPORT INFORMATION
  Report Type: Spontaneous
  Country: US (occurrence: US)
  Receive Date: 20150421
  Receipt Date: 20150421
  Transmission Date: 20150821
  Serious: Yes (Other)
  Sender: FDA-Public Use
  Company Number: US-MALLINCKRODT-T201502095

PATIENT
  Age: 63 Year
  Sex: Female

DRUGS (5)
  1. OFIRMEV [Suspect]
     Active Substance: ACETAMINOPHEN
     Indication: SURGERY
     Dosage: 1 GRAM IN TWO DOSES; 1ST AT 1405; 2ND AT 1947
     Route: 042
     Dates: start: 20150331, end: 20150331
  2. ZOFRAN [Concomitant]
     Active Substance: ONDANSETRON HYDROCHLORIDE
  3. DECADRON [Concomitant]
     Active Substance: DEXAMETHASONE
     Dosage: UNK
     Dates: start: 20150331
  4. NEO SYNEPHRINE [Concomitant]
  5. FENTANYL. [Concomitant]
     Active Substance: FENTANYL

REACTIONS (1)
  - Body temperature decreased [Unknown]

NARRATIVE: CASE EVENT DATE: 20150331
